FAERS Safety Report 22109676 (Version 1)
Quarter: 2023Q1

REPORT INFORMATION
  Report Type: Spontaneous
  Country: US (occurrence: None)
  Receive Date: 20230316
  Receipt Date: 20230316
  Transmission Date: 20230418
  Serious: Yes (Hospitalization)
  Sender: FDA-Public Use
  Company Number: None

PATIENT
  Sex: Female

DRUGS (2)
  1. PROLIA [Suspect]
     Active Substance: DENOSUMAB
     Indication: Pulmonary fibrosis
     Dosage: OTHER FREQUENCY : EVERY 6 MONTHS;?
     Route: 058
     Dates: start: 202302
  2. PROLIA [Suspect]
     Active Substance: DENOSUMAB
     Indication: Senile osteoporosis

REACTIONS (2)
  - Cardiac disorder [None]
  - Therapy cessation [None]
